FAERS Safety Report 17299894 (Version 1)
Quarter: 2020Q1

REPORT INFORMATION
  Report Type: Spontaneous
  Country: US (occurrence: US)
  Receive Date: 20200121
  Receipt Date: 20200121
  Transmission Date: 20200409
  Serious: Yes (Life-Threatening, Hospitalization, Disabling, Other)
  Sender: FDA-Public Use
  Company Number: None

PATIENT
  Age: 41 Year
  Sex: Female
  Weight: 60.75 kg

DRUGS (1)
  1. GILDESS 1.5/30 [Suspect]
     Active Substance: ETHINYL ESTRADIOL\NORETHINDRONE ACETATE
     Indication: CONTRACEPTION
     Dosage: ?          OTHER STRENGTH:TABLET;QUANTITY:1 TABLET(S);?
     Route: 048
     Dates: start: 20150602, end: 20160926

REACTIONS (13)
  - Menstrual disorder [None]
  - Recalled product [None]
  - Loss of employment [None]
  - Cyst [None]
  - Skin disorder [None]
  - Abortion spontaneous [None]
  - Pain [None]
  - Ruptured ectopic pregnancy [None]
  - Metrorrhagia [None]
  - Pregnancy on oral contraceptive [None]
  - Vaginal haemorrhage [None]
  - Ectopic pregnancy [None]
  - Anxiety [None]

NARRATIVE: CASE EVENT DATE: 20160926
